FAERS Safety Report 6095283-9 (Version None)
Quarter: 2009Q1

REPORT INFORMATION
  Report Type: 
  Country: None (occurrence: None)
  Receive Date: 20090227
  Receipt Date: 20080228
  Transmission Date: 20090719
  Serious: No
  Sender: FDA-Public Use
  Company Number: A0712471A

PATIENT
  Age: 46 Year
  Sex: Female

DRUGS (4)
  1. LAMICTAL [Suspect]
     Indication: DEPRESSION
     Dosage: 300MG PER DAY
     Route: 048
     Dates: start: 20060201
  2. WELLBUTRIN XL [Concomitant]
  3. LITHIUM [Concomitant]
  4. BIRTH CONTROL PILLS [Concomitant]

REACTIONS (3)
  - DEPRESSION [None]
  - DRUG ADMINISTRATION ERROR [None]
  - MENTAL STATUS CHANGES [None]
